FAERS Safety Report 10484435 (Version 1)
Quarter: 2014Q3

REPORT INFORMATION
  Report Type: Spontaneous
  Country: CN (occurrence: CN)
  Receive Date: 20140930
  Receipt Date: 20140930
  Transmission Date: 20150326
  Serious: Yes (Death, Hospitalization)
  Sender: FDA-Public Use
  Company Number: CN-MYLANLABS-2014M1005846

PATIENT

DRUGS (1)
  1. METHIMAZOLE. [Suspect]
     Active Substance: METHIMAZOLE
     Indication: HYPERTHYROIDISM
     Dosage: 5 MG, TID
     Route: 048

REACTIONS (6)
  - Chest discomfort [None]
  - Agranulocytosis [Fatal]
  - Decreased appetite [None]
  - Septic shock [Fatal]
  - Pneumonia klebsiella [None]
  - Bacterial test positive [None]
